FAERS Safety Report 18028003 (Version 6)
Quarter: 2020Q3

REPORT INFORMATION
  Report Type: Spontaneous
  Country: JP (occurrence: JP)
  Receive Date: 20200716
  Receipt Date: 20200924
  Transmission Date: 20201103
  Serious: Yes (Death, Other)
  Sender: FDA-Public Use
  Company Number: JP-BRISTOL-MYERS SQUIBB COMPANY-BMS-2020-056884

PATIENT
  Age: 70 Year
  Sex: Male
  Weight: 41 kg

DRUGS (8)
  1. SULBACILLIN [Concomitant]
     Active Substance: AMPICILLIN SODIUM\SULBACTAM SODIUM
     Indication: PRODUCT USED FOR UNKNOWN INDICATION
     Dosage: UNK
     Route: 042
     Dates: start: 20200619, end: 20200626
  2. VANCOMYCIN HYDROCHLORIDE. [Concomitant]
     Active Substance: VANCOMYCIN HYDROCHLORIDE
     Indication: PRODUCT USED FOR UNKNOWN INDICATION
     Dosage: 1 GRAM, Q12H
     Route: 065
     Dates: start: 20200706, end: 20200710
  3. ZOLEDRONIC ACID [Concomitant]
     Active Substance: ZOLEDRONIC ACID
     Indication: PRODUCT USED FOR UNKNOWN INDICATION
     Dosage: QD
     Route: 041
     Dates: start: 20200415
  4. OPDIVO [Suspect]
     Active Substance: NIVOLUMAB
     Indication: HYPOPHARYNGEAL CANCER
     Dosage: 240 MILLIGRAM
     Route: 041
     Dates: start: 20200414, end: 20200605
  5. ZOLEDRONIC ACID [Concomitant]
     Active Substance: ZOLEDRONIC ACID
     Dosage: 4 MILLIGRAM, QD
     Route: 041
     Dates: start: 20200702
  6. SULBACILLIN [Concomitant]
     Active Substance: AMPICILLIN SODIUM\SULBACTAM SODIUM
     Dosage: 3 GRAM, Q8H
     Route: 042
     Dates: start: 20200621, end: 20200626
  7. LEVOFLOXACIN HEMIHYDRATE [Concomitant]
     Active Substance: LEVOFLOXACIN
     Indication: PRODUCT USED FOR UNKNOWN INDICATION
     Dosage: 500 MILLIGRAM, QD
     Route: 042
     Dates: start: 20200708, end: 20200709
  8. MEROPENEM. [Concomitant]
     Active Substance: MEROPENEM
     Indication: PRODUCT USED FOR UNKNOWN INDICATION
     Dosage: 1 GRAM, Q8H
     Route: 041
     Dates: start: 20200626, end: 20200707

REACTIONS (11)
  - Disseminated intravascular coagulation [Fatal]
  - Hepatitis acute [Fatal]
  - Cardiac failure [Unknown]
  - Congestive hepatopathy [Unknown]
  - Urinary tract infection [Unknown]
  - Prostatomegaly [Unknown]
  - Hydronephrosis [Unknown]
  - Gallbladder polyp [Unknown]
  - Pyelocaliectasis [Unknown]
  - Cholecystitis [Unknown]
  - Pleural effusion [Unknown]

NARRATIVE: CASE EVENT DATE: 20200615
